FAERS Safety Report 9994597 (Version 2)
Quarter: 2014Q1

REPORT INFORMATION
  Report Type: Spontaneous
  Country: IT (occurrence: IT)
  Receive Date: 20140311
  Receipt Date: 20140320
  Transmission Date: 20141002
  Serious: Yes (Death, Hospitalization, Other)
  Sender: FDA-Public Use
  Company Number: IT-BRISTOL-MYERS SQUIBB COMPANY-20345609

PATIENT
  Age: 88 Year
  Sex: Female

DRUGS (5)
  1. MAXIPIME [Suspect]
     Indication: BACTERIAL INFECTION
     Dates: start: 20130706, end: 20130725
  2. COUMADIN [Suspect]
     Dates: start: 20130706, end: 20130725
  3. DILZENE [Concomitant]
     Route: 048
  4. MONOCINQUE [Concomitant]
     Route: 048
  5. DINTOINA [Concomitant]
     Dosage: TABS
     Route: 048

REACTIONS (6)
  - Death [Fatal]
  - Renal failure [Unknown]
  - Metabolic acidosis [Unknown]
  - Hyperkalaemia [Unknown]
  - Clostridium difficile infection [Unknown]
  - Azotaemia [Unknown]
